FAERS Safety Report 5859065-2 (Version None)
Quarter: 2008Q3

REPORT INFORMATION
  Report Type: 
  Country: None (occurrence: None)
  Receive Date: 20080827
  Receipt Date: 20080818
  Transmission Date: 20090109
  Serious: Yes (Hospitalization)
  Sender: FDA-Public Use
  Company Number: US-JNJFOC-20080804395

PATIENT
  Sex: Female

DRUGS (7)
  1. REMICADE [Suspect]
     Route: 042
  2. REMICADE [Suspect]
     Dosage: UNKNOWN IF PRIOR INFLIXIMAB INFUSIONS HAD BEEN ADMINISTERED
     Route: 042
  3. REMICADE [Suspect]
     Indication: CROHN'S DISEASE
     Route: 042
  4. LORTAB [Concomitant]
  5. PREDNISONE TAB [Concomitant]
  6. IMODIUM [Concomitant]
  7. SYNTHROID [Concomitant]

REACTIONS (2)
  - INFUSION RELATED REACTION [None]
  - INTESTINAL ANASTOMOSIS [None]
